FAERS Safety Report 5841795-X (Version None)
Quarter: 2008Q3

REPORT INFORMATION
  Report Type: 
  Country: None (occurrence: None)
  Receive Date: 20080812
  Receipt Date: 20080804
  Transmission Date: 20090109
  Serious: Yes (Other)
  Sender: FDA-Public Use
  Company Number: A0738425A

PATIENT
  Age: 41 Year
  Sex: Female

DRUGS (12)
  1. ADVAIR DISKUS 100/50 [Suspect]
     Indication: ASTHMA
     Dosage: 1PUFF TWICE PER DAY
     Route: 055
     Dates: start: 20080707, end: 20080710
  2. FLOVENT [Suspect]
     Indication: DRUG USE FOR UNKNOWN INDICATION
     Route: 065
  3. VERAMYST [Suspect]
     Route: 065
     Dates: start: 20080401
  4. ALLEGRA [Concomitant]
  5. CALCIUM SUPPLEMENT [Concomitant]
  6. FISH OIL [Concomitant]
  7. M.V.I. [Concomitant]
  8. SINGULAIR [Concomitant]
  9. SUDAFED 12 HOUR [Concomitant]
  10. FLUOXETINE [Concomitant]
  11. METOPROLOL SUCCINATE [Concomitant]
  12. ALBUTEROL [Concomitant]

REACTIONS (5)
  - CHEST DISCOMFORT [None]
  - DYSPHONIA [None]
  - DYSPNOEA [None]
  - MOUTH ULCERATION [None]
  - TONGUE DISCOLOURATION [None]
